FAERS Safety Report 12101096 (Version 2)
Quarter: 2016Q1

REPORT INFORMATION
  Report Type: Other
  Country: IN (occurrence: IN)
  Receive Date: 20160222
  Receipt Date: 20160223
  Transmission Date: 20160526
  Serious: Yes (Death, Hospitalization, Other)
  Sender: FDA-Public Use
  Company Number: IN-IGI LABORATORIES, INC.-1048194

PATIENT
  Age: 34 Year
  Sex: Male

DRUGS (4)
  1. COTRIMOXAZOLE [Concomitant]
     Active Substance: SULFAMETHOXAZOLE\TRIMETHOPRIM
  2. FORTAZ [Suspect]
     Active Substance: CEFTAZIDIME SODIUM
     Indication: BURKHOLDERIA PSEUDOMALLEI INFECTION
  3. DOXYCYCLINE. [Concomitant]
     Active Substance: DOXYCYCLINE
  4. MEROPENEM. [Suspect]
     Active Substance: MEROPENEM

REACTIONS (5)
  - Drug resistance [Fatal]
  - Dyspnoea [Unknown]
  - Pneumonia [Unknown]
  - Burkholderia pseudomallei infection [Fatal]
  - Pyrexia [Unknown]
